FAERS Safety Report 17711920 (Version 1)
Quarter: 2020Q2

REPORT INFORMATION
  Report Type: Spontaneous
  Country: AT (occurrence: AT)
  Receive Date: 20200427
  Receipt Date: 20200427
  Transmission Date: 20200714
  Serious: Yes (Other)
  Sender: FDA-Public Use
  Company Number: AT-PFIZER INC-2020163177

PATIENT
  Sex: Female

DRUGS (2)
  1. EFECTIN ER [Suspect]
     Active Substance: VENLAFAXINE HYDROCHLORIDE
     Dosage: UNK
  2. VENLAFAB [Suspect]
     Active Substance: VENLAFAXINE HYDROCHLORIDE
     Dosage: UNK

REACTIONS (88)
  - Muscular weakness [Recovering/Resolving]
  - Serotonin syndrome [Recovering/Resolving]
  - Nausea [Recovering/Resolving]
  - Hyperreflexia [Recovering/Resolving]
  - Blood pressure fluctuation [Recovering/Resolving]
  - Seizure [Recovering/Resolving]
  - Respiratory disorder [Recovering/Resolving]
  - Tooth disorder [Recovering/Resolving]
  - Nervousness [Recovering/Resolving]
  - Cataract [Recovered/Resolved]
  - Dizziness [Recovering/Resolving]
  - Crying [Recovered/Resolved]
  - Eczema [Recovering/Resolving]
  - Hypertonia [Recovered/Resolved]
  - Nightmare [Recovering/Resolving]
  - Neck pain [Recovering/Resolving]
  - Libido decreased [Recovering/Resolving]
  - Somnolence [Recovering/Resolving]
  - Influenza like illness [Recovering/Resolving]
  - Disturbance in attention [Recovering/Resolving]
  - Urinary hesitation [Recovering/Resolving]
  - Mydriasis [Not Recovered/Not Resolved]
  - Restless legs syndrome [Recovering/Resolving]
  - Asthenia [Recovering/Resolving]
  - Restlessness [Recovering/Resolving]
  - Psoriasis [Recovering/Resolving]
  - Stress cardiomyopathy [Recovering/Resolving]
  - Saliva altered [Recovering/Resolving]
  - Weight decreased [Recovering/Resolving]
  - Paraesthesia [Recovering/Resolving]
  - Intracranial pressure increased [Recovering/Resolving]
  - Hyperhidrosis [Recovering/Resolving]
  - Contusion [Recovering/Resolving]
  - Muscle twitching [Recovering/Resolving]
  - Post-traumatic stress disorder [Recovering/Resolving]
  - Choking sensation [Recovering/Resolving]
  - Periodontal disease [Not Recovered/Not Resolved]
  - Tinnitus [Recovering/Resolving]
  - Pharyngeal swelling [Recovering/Resolving]
  - Dysphagia [Recovering/Resolving]
  - Yawning [Recovering/Resolving]
  - Constipation [Recovering/Resolving]
  - Emotional disorder [Recovering/Resolving]
  - Muscle spasms [Recovering/Resolving]
  - Dyspnoea [Recovering/Resolving]
  - Sensory disturbance [Recovering/Resolving]
  - Heart rate increased [Unknown]
  - Psychomotor hyperactivity [Recovering/Resolving]
  - Heart rate irregular [Recovering/Resolving]
  - Dry mouth [Recovering/Resolving]
  - Vision blurred [Not Recovered/Not Resolved]
  - Obsessive rumination [Recovering/Resolving]
  - Malaise [Recovered/Resolved]
  - Headache [Recovering/Resolving]
  - Coordination abnormal [Recovering/Resolving]
  - Abdominal distension [Recovering/Resolving]
  - Mood swings [Recovering/Resolving]
  - Depression [Recovering/Resolving]
  - Withdrawal syndrome [Recovering/Resolving]
  - Eye pain [Not Recovered/Not Resolved]
  - Urticaria [Recovering/Resolving]
  - Abdominal pain [Recovering/Resolving]
  - Tachyphrenia [Recovering/Resolving]
  - Musculoskeletal stiffness [Recovering/Resolving]
  - Photosensitivity reaction [Recovering/Resolving]
  - Erythema [Recovered/Resolved]
  - Ocular discomfort [Not Recovered/Not Resolved]
  - Cognitive disorder [Recovering/Resolving]
  - Social problem [Recovered/Resolved]
  - Blood cholesterol increased [Recovering/Resolving]
  - Diarrhoea [Recovering/Resolving]
  - Spinal disorder [Recovering/Resolving]
  - Wheezing [Recovering/Resolving]
  - Polyuria [Recovering/Resolving]
  - Chest discomfort [Recovering/Resolving]
  - Depersonalisation/derealisation disorder [Recovering/Resolving]
  - Body temperature increased [Recovering/Resolving]
  - Confusional state [Recovering/Resolving]
  - Decreased appetite [Recovering/Resolving]
  - Pelvic discomfort [Recovering/Resolving]
  - Fatigue [Recovering/Resolving]
  - Suicidal ideation [Recovering/Resolving]
  - Pruritus [Recovering/Resolving]
  - Insomnia [Recovering/Resolving]
  - Back pain [Recovering/Resolving]
  - Face oedema [Recovering/Resolving]
  - Oedema [Recovering/Resolving]
  - Urinary retention [Recovering/Resolving]
